FAERS Safety Report 4488296-1 (Version None)
Quarter: 2004Q4

REPORT INFORMATION
  Report Type: 
  Country: None (occurrence: None)
  Receive Date: 20041026
  Receipt Date: 20041014
  Transmission Date: 20050328
  Serious: Yes (Death, Life-Threatening, Hospitalization, Other)
  Sender: FDA-Public Use
  Company Number: USA-2004-0016923

PATIENT
  Sex: Female
  Weight: 136.1 kg

DRUGS (1)
  1. OXYCONTIN [Suspect]
     Indication: PAIN
     Dosage: 1 TABLET,  Q12H

REACTIONS (9)
  - BRADYCARDIA [None]
  - CARDIAC FAILURE CONGESTIVE [None]
  - COMA [None]
  - DYSPNOEA [None]
  - OVERDOSE [None]
  - PAIN [None]
  - RESPIRATORY DEPRESSION [None]
  - RESPIRATORY DISTRESS [None]
  - TREATMENT NONCOMPLIANCE [None]
